FAERS Safety Report 6666456-9 (Version None)
Quarter: 2010Q2

REPORT INFORMATION
  Report Type: 
  Country: None (occurrence: None)
  Receive Date: 20100402
  Receipt Date: 20100323
  Transmission Date: 20101027
  Serious: Yes (Death)
  Sender: FDA-Public Use
  Company Number: ZA-ABBOTT-10P-143-0634024-00

PATIENT
  Sex: Female

DRUGS (1)
  1. EPILIM CR [Suspect]
     Indication: DRUG USE FOR UNKNOWN INDICATION
     Dosage: TABLET
     Route: 048

REACTIONS (3)
  - COMA [None]
  - INCORRECT ROUTE OF DRUG ADMINISTRATION [None]
  - WRONG TECHNIQUE IN DRUG USAGE PROCESS [None]
